FAERS Safety Report 7430946-1 (Version None)
Quarter: 2011Q2

REPORT INFORMATION
  Report Type: 
  Country: None (occurrence: None)
  Receive Date: 20110421
  Receipt Date: 20110407
  Transmission Date: 20111010
  Serious: Yes (Hospitalization, Disabling, Other)
  Sender: FDA-Public Use
  Company Number: IT-CELGENEUS-083-50794-11022852

PATIENT
  Sex: Male

DRUGS (5)
  1. ANTRA [Concomitant]
     Route: 065
     Dates: start: 20110208, end: 20110226
  2. ZEFFIX [Concomitant]
     Indication: PROPHYLAXIS
     Dosage: 1 CAPSULE
     Route: 065
     Dates: start: 20110201
  3. ZYLORIC [Concomitant]
     Dosage: 150 MILLIGRAM
     Route: 065
  4. VIDAZA [Suspect]
     Dosage: 125 MILLIGRAM
     Route: 058
     Dates: start: 20110125, end: 20110131
  5. NORVASC [Concomitant]
     Route: 065

REACTIONS (8)
  - RHABDOMYOLYSIS [None]
  - PANCYTOPENIA [None]
  - HYPERPYREXIA [None]
  - ATRIAL FIBRILLATION [None]
  - HAEMATURIA [None]
  - OEDEMA PERIPHERAL [None]
  - MUSCULOSKELETAL PAIN [None]
  - RASH ERYTHEMATOUS [None]
